FAERS Safety Report 9786422 (Version 2)
Quarter: 2014Q1

REPORT INFORMATION
  Report Type: Spontaneous
  Country: JP (occurrence: JP)
  Receive Date: 20131227
  Receipt Date: 20140314
  Transmission Date: 20141002
  Serious: Yes (Hospitalization)
  Sender: FDA-Public Use
  Company Number: JP-EISAI INC-E7389-04584-SPO-JP

PATIENT
  Age: 67 Year
  Sex: Female

DRUGS (2)
  1. HALAVEN [Suspect]
     Indication: PRODUCT USED FOR UNKNOWN INDICATION
     Dosage: 2 MG
     Route: 041
     Dates: start: 20131101, end: 20131101
  2. HALAVEN [Suspect]
     Dosage: 1.5 MG
     Route: 041
     Dates: start: 20131111

REACTIONS (1)
  - Disuse syndrome [Unknown]
